FAERS Safety Report 24446981 (Version 2)
Quarter: 2024Q4

REPORT INFORMATION
  Report Type: Spontaneous
  Country: DE (occurrence: DE)
  Receive Date: 20241016
  Receipt Date: 20241029
  Transmission Date: 20250115
  Serious: Yes (Hospitalization, Other)
  Sender: FRESENIUS KABI
  Company Number: None

PATIENT
  Age: 74 Year
  Sex: Male
  Weight: 70 kg

DRUGS (9)
  1. OXALIPLATIN [Suspect]
     Active Substance: OXALIPLATIN
     Indication: Gastric cancer
     Dosage: 10:35 A.M. - 10:50 A.M.?FOA: CONCENTRATE FOR SOLUTION FOR INFUSION
     Route: 042
     Dates: start: 20240909
  2. DOCETAXEL [Suspect]
     Active Substance: DOCETAXEL
     Indication: Gastric cancer
     Dosage: 09:30 - 10:30 A.M.?FOA: CONCENTRATE FOR SOLUTION FOR INFUSION
     Route: 042
     Dates: start: 20240909
  3. SODIUM CHLORIDE [Concomitant]
     Active Substance: SODIUM CHLORIDE
     Indication: Catheter management
     Dosage: 08:15 A.M.
     Route: 042
     Dates: start: 20240909
  4. GRANISETRON [Concomitant]
     Active Substance: GRANISETRON
     Indication: Antiemetic supportive care
     Dosage: 08:30 A.M.?FOA: UNKNOWN
     Route: 042
     Dates: start: 20240909
  5. EMEND [Concomitant]
     Active Substance: APREPITANT
     Indication: Antiemetic supportive care
     Dosage: 08:45 - 09:05 A.M.
     Route: 042
     Dates: start: 20240909
  6. DIMETHINDENE [Concomitant]
     Active Substance: DIMETHINDENE
     Indication: Antiallergic therapy
     Dosage: 09:05 A.M. I.V. BOLUS
     Route: 042
     Dates: start: 20240909
  7. ATENOLOL [Concomitant]
     Active Substance: ATENOLOL
     Indication: Product used for unknown indication
     Dosage: ROA: UNKNOWN?FOA: UNKNOWN
  8. DEXAMETHASONE [Concomitant]
     Active Substance: DEXAMETHASONE
     Indication: Antiemetic supportive care
     Dosage: 08:15 A.M. I.V. BOLUS
     Route: 042
     Dates: start: 20240909
  9. AMLODIPINE [Concomitant]
     Active Substance: AMLODIPINE BESYLATE
     Indication: Product used for unknown indication
     Dosage: ROA: UNKNOWN?FOA: UNKNOWN

REACTIONS (8)
  - Pain [Recovering/Resolving]
  - Abdominal pain upper [Recovering/Resolving]
  - Chest pain [Recovering/Resolving]
  - Hyperhidrosis [Recovering/Resolving]
  - Vomiting [Recovering/Resolving]
  - Blood pressure decreased [Recovering/Resolving]
  - Arteriospasm coronary [Recovering/Resolving]
  - Oxygen saturation decreased [Recovering/Resolving]

NARRATIVE: CASE EVENT DATE: 20240909
